FAERS Safety Report 23706173 (Version 3)
Quarter: 2024Q4

REPORT INFORMATION
  Report Type: Spontaneous
  Country: US (occurrence: US)
  Receive Date: 20240404
  Receipt Date: 20241126
  Transmission Date: 20250114
  Serious: Yes (Other)
  Sender: AMGEN
  Company Number: US-AMGEN-USASP2024064800

PATIENT
  Age: 52 Year
  Sex: Female

DRUGS (2)
  1. RITUXIMAB [Suspect]
     Active Substance: RITUXIMAB
     Indication: Orbital apex syndrome
     Dosage: UNK
     Route: 065
  2. PREDNISONE [Suspect]
     Active Substance: PREDNISONE
     Indication: Orbital apex syndrome
     Dosage: 60 MILLIGRAM, QWK
     Route: 048

REACTIONS (5)
  - Diabetes mellitus [Unknown]
  - Scleritis [Unknown]
  - Ophthalmoplegia [Unknown]
  - Drug effective for unapproved indication [Unknown]
  - Off label use [Unknown]
